FAERS Safety Report 4707498-X (Version None)
Quarter: 2005Q3

REPORT INFORMATION
  Report Type: 
  Country: None (occurrence: None)
  Receive Date: 20050701
  Receipt Date: 20050620
  Transmission Date: 20060218
  Serious: Yes (Hospitalization, Other)
  Sender: FDA-Public Use
  Company Number: SUS1-2004-00719

PATIENT
  Age: 43 Year
  Sex: Female

DRUGS (4)
  1. PENTASA [Suspect]
     Indication: CROHN'S DISEASE
     Dosage: 2250 MG, DAILY, ORAL
     Route: 048
     Dates: start: 19960726, end: 20040322
  2. PREDNISONE [Concomitant]
  3. LOPERAMIDE [Concomitant]
  4. PANCREATIC ENZYME COMBINED DRUG [Concomitant]

REACTIONS (5)
  - BLOOD ELECTROLYTES ABNORMAL [None]
  - DEHYDRATION [None]
  - DIARRHOEA [None]
  - RENAL FAILURE CHRONIC [None]
  - TUBULOINTERSTITIAL NEPHRITIS [None]
